FAERS Safety Report 7105099-X (Version None)
Quarter: 2010Q4

REPORT INFORMATION
  Report Type: 
  Country: None (occurrence: None)
  Receive Date: 20101116
  Receipt Date: 20101105
  Transmission Date: 20110411
  Serious: Yes (Other)
  Sender: FDA-Public Use
  Company Number: US-JNJFOC-20101103087

PATIENT
  Age: 64 Year
  Sex: Female

DRUGS (1)
  1. DOXIL [Suspect]
     Indication: OVARIAN EPITHELIAL CANCER RECURRENT
     Dosage: UNSPECIFIED DOSE EVERY 4-7 WEEKS FOR 5 YEARS; CUMULATIVE DOSE 2070 MG
     Route: 042

REACTIONS (5)
  - BLOOD CREATININE INCREASED [None]
  - HYDRONEPHROSIS [None]
  - NEPHROSCLEROSIS [None]
  - OVARIAN EPITHELIAL CANCER RECURRENT [None]
  - RENAL FAILURE [None]
